FAERS Safety Report 6569491-4 (Version None)
Quarter: 2010Q1

REPORT INFORMATION
  Report Type: 
  Country: None (occurrence: None)
  Receive Date: 20100204
  Receipt Date: 20100126
  Transmission Date: 20100710
  Serious: Yes (Hospitalization)
  Sender: FDA-Public Use
  Company Number: IT-PFIZER INC-2010002992

PATIENT
  Age: 77 Year
  Sex: Male

DRUGS (4)
  1. SUTENT [Suspect]
     Indication: RENAL CANCER
     Dosage: 37.5 MG, X/DAY
     Route: 048
     Dates: start: 20091102, end: 20091128
  2. OXYCODONE HYDROCHLORIDE [Concomitant]
  3. NORVASC [Concomitant]
  4. FUROSEMIDE [Concomitant]

REACTIONS (2)
  - LEUKOPENIA [None]
  - RESPIRATORY FAILURE [None]
